FAERS Safety Report 11848539 (Version 1)
Quarter: 2015Q4

REPORT INFORMATION
  Report Type: Report from Study
  Country: US (occurrence: US)
  Receive Date: 20151218
  Receipt Date: 20151218
  Transmission Date: 20160305
  Serious: No
  Sender: FDA-Public Use
  Company Number: US-AMGEN-USASL2015133640

PATIENT
  Age: 32 Year
  Sex: Female

DRUGS (1)
  1. ENBREL [Suspect]
     Active Substance: ETANERCEPT
     Indication: RHEUMATOID ARTHRITIS
     Dosage: 50 MG, UNK
     Route: 065
     Dates: start: 20131201

REACTIONS (9)
  - Tenderness [Unknown]
  - Musculoskeletal discomfort [Unknown]
  - Arthralgia [Unknown]
  - Muscular weakness [Unknown]
  - Elbow deformity [Unknown]
  - Hypoaesthesia [Unknown]
  - Condition aggravated [Unknown]
  - Inappropriate schedule of drug administration [Unknown]
  - Joint swelling [Unknown]

NARRATIVE: CASE EVENT DATE: 201509
